FAERS Safety Report 8266708-5 (Version None)
Quarter: 2012Q2

REPORT INFORMATION
  Report Type: 
  Country: None (occurrence: None)
  Receive Date: 20120409
  Receipt Date: 20120404
  Transmission Date: 20120825
  Serious: Yes (Hospitalization)
  Sender: FDA-Public Use
  Company Number: NL-AMGEN-NLDSP2012021551

PATIENT
  Age: 50 Year
  Sex: Male

DRUGS (6)
  1. PREDNISONE TAB [Suspect]
     Indication: MALIGNANT LYMPHOID NEOPLASM
     Dosage: UNK
     Route: 048
     Dates: start: 20120308
  2. NEUPOGEN [Suspect]
     Indication: MALIGNANT LYMPHOID NEOPLASM
     Dosage: UNK
     Route: 058
     Dates: start: 20120309
  3. RITUXIMAB [Suspect]
     Indication: MALIGNANT LYMPHOID NEOPLASM
     Dosage: UNK
     Route: 042
     Dates: start: 20120308
  4. CYCLOPHOSPHAMIDE [Suspect]
     Indication: MALIGNANT LYMPHOID NEOPLASM
     Dosage: UNK
     Route: 042
     Dates: start: 20120308
  5. VINCRISTINE [Suspect]
     Indication: MALIGNANT LYMPHOID NEOPLASM
     Dosage: UNK
     Route: 042
     Dates: start: 20120308
  6. DOXORUBICIN HCL [Suspect]
     Indication: MALIGNANT LYMPHOID NEOPLASM
     Dosage: UNK
     Route: 042
     Dates: start: 20120308

REACTIONS (1)
  - ILEUS [None]
